FAERS Safety Report 7597966-8 (Version None)
Quarter: 2011Q3

REPORT INFORMATION
  Report Type: 
  Country: None (occurrence: None)
  Receive Date: 20110708
  Receipt Date: 20110629
  Transmission Date: 20111222
  Serious: Yes (Hospitalization)
  Sender: FDA-Public Use
  Company Number: PHHY2011US58300

PATIENT
  Age: 35 Year
  Sex: Female

DRUGS (9)
  1. VALPROIC ACID [Suspect]
     Indication: SCHIZOPHRENIA
     Dosage: 1500 MG, Q4H
     Route: 048
  2. BENZTROPINE MESYLATE [Suspect]
     Dosage: 0.5 MG, BID
     Route: 048
  3. HALOPERIDOL [Suspect]
     Indication: SCHIZOPHRENIA
     Dosage: 5 MG, AS NEEDED
     Route: 048
  4. PERPHENAZINE [Suspect]
     Indication: SCHIZOPHRENIA
     Dosage: 16 MG, TID
     Route: 048
  5. BENZTROPINE MESYLATE [Suspect]
     Indication: EXTRAPYRAMIDAL DISORDER
     Dosage: 1 MG, TID
     Route: 048
  6. RISPERIDONE [Suspect]
     Dosage: 4 MG, BID
     Route: 048
  7. OLANZAPINE [Suspect]
     Indication: SCHIZOPHRENIA
     Dosage: 20 MG, BID
     Route: 048
  8. LITHIUM CARBONATE [Suspect]
     Indication: SCHIZOPHRENIA
     Dosage: 600 MG, BID
     Route: 048
  9. RISPERIDONE [Suspect]
     Indication: SCHIZOPHRENIA
     Dosage: 4 MG, TID
     Route: 048

REACTIONS (3)
  - ABDOMINAL PAIN [None]
  - ABDOMINAL DISTENSION [None]
  - ILEUS PARALYTIC [None]
